FAERS Safety Report 26217034 (Version 1)
Quarter: 2025Q4

REPORT INFORMATION
  Report Type: Spontaneous
  Country: US (occurrence: None)
  Receive Date: 20251231
  Receipt Date: 20251231
  Transmission Date: 20260117
  Serious: No
  Sender: ENCUBE ETHICALS PVT. LTD.
  Company Number: US-Encube-002743

PATIENT
  Age: 62 Year
  Sex: Male

DRUGS (2)
  1. KETOCONAZOLE [Suspect]
     Active Substance: KETOCONAZOLE
     Indication: Rash
     Dosage: APPLIED THREE TIMES IN THIRTY-SIX HOURS
     Dates: start: 20251023, end: 20251024
  2. KETOCONAZOLE [Suspect]
     Active Substance: KETOCONAZOLE
     Indication: Rash

REACTIONS (2)
  - Application site exfoliation [Recovered/Resolved with Sequelae]
  - Skin erosion [Recovered/Resolved with Sequelae]

NARRATIVE: CASE EVENT DATE: 20251001
